FAERS Safety Report 9592701 (Version 1)
Quarter: 2013Q4

REPORT INFORMATION
  Report Type: Spontaneous
  Country: US (occurrence: US)
  Receive Date: 20131004
  Receipt Date: 20131004
  Transmission Date: 20140711
  Serious: No
  Sender: FDA-Public Use
  Company Number: US-009507513-1310USA002141

PATIENT
  Sex: Female

DRUGS (1)
  1. CLOTRIMAZOLE/BETAMETHASONE DIPROPIONATE (WARRICK) [Suspect]
     Indication: FUNGAL INFECTION
     Dosage: UNK
     Dates: start: 2013

REACTIONS (2)
  - Erythema [Not Recovered/Not Resolved]
  - Pruritus [Recovered/Resolved]
